FAERS Safety Report 18071817 (Version 1)
Quarter: 2020Q3

REPORT INFORMATION
  Report Type: Spontaneous
  Country: US (occurrence: US)
  Receive Date: 20200727
  Receipt Date: 20200727
  Transmission Date: 20201103
  Serious: Yes (Other)
  Sender: FDA-Public Use
  Company Number: US-ELI_LILLY_AND_COMPANY-US202007007122

PATIENT
  Sex: Female

DRUGS (2)
  1. HUMALOG [Suspect]
     Active Substance: INSULIN LISPRO
     Indication: TYPE 2 DIABETES MELLITUS
     Dosage: UNK, UNKNOWN
     Route: 058
  2. LANTUS [Concomitant]
     Active Substance: INSULIN GLARGINE
     Indication: TYPE 2 DIABETES MELLITUS

REACTIONS (8)
  - Nail hypertrophy [Not Recovered/Not Resolved]
  - Tooth loss [Not Recovered/Not Resolved]
  - Incorrect dose administered [Unknown]
  - Chronic kidney disease [Not Recovered/Not Resolved]
  - Blindness [Not Recovered/Not Resolved]
  - Contusion [Not Recovered/Not Resolved]
  - Gingival disorder [Not Recovered/Not Resolved]
  - Glycosylated haemoglobin increased [Unknown]
